FAERS Safety Report 4818844-0 (Version None)
Quarter: 2005Q4

REPORT INFORMATION
  Report Type: 
  Country: None (occurrence: None)
  Receive Date: 20051101
  Receipt Date: 20051019
  Transmission Date: 20060501
  Serious: Yes (Other)
  Sender: FDA-Public Use
  Company Number: 2005BI017756

PATIENT
  Age: 86 Year
  Sex: Male

DRUGS (1)
  1. AMEVIVE [Suspect]
     Indication: PSORIASIS
     Dosage: 15 MG, QW; IM
     Route: 030
     Dates: start: 20050726, end: 20050907

REACTIONS (2)
  - LUNG NEOPLASM MALIGNANT [None]
  - MALAISE [None]
